FAERS Safety Report 26058349 (Version 4)
Quarter: 2025Q4

REPORT INFORMATION
  Report Type: Spontaneous
  Country: GB (occurrence: GB)
  Receive Date: 20251118
  Receipt Date: 20251230
  Transmission Date: 20260117
  Serious: Yes (Hospitalization, Other)
  Sender: MYLAN
  Company Number: GB-MYLANLABS-2025M1097315

PATIENT
  Sex: Female

DRUGS (1)
  1. CLOZARIL [Suspect]
     Active Substance: CLOZAPINE
     Indication: Schizophrenia
     Dosage: BID (25 MG MORNING 175 MG AT NIGHT)
     Route: 061
     Dates: start: 20240531, end: 20251124

REACTIONS (3)
  - Schizophrenia [Recovered/Resolved]
  - Full blood count abnormal [Unknown]
  - Treatment noncompliance [Unknown]
